FAERS Safety Report 8858828 (Version 3)
Quarter: 2014Q1

REPORT INFORMATION
  Report Type: Spontaneous
  Country: US (occurrence: US)
  Receive Date: 20121024
  Receipt Date: 20140102
  Transmission Date: 20141002
  Serious: Yes (Hospitalization)
  Sender: FDA-Public Use
  Company Number: US-BAYER-2012-109460

PATIENT
  Age: 48 Year
  Sex: Female
  Weight: 190.93 kg

DRUGS (19)
  1. YAZ [Suspect]
  2. YASMIN [Suspect]
     Indication: MENORRHAGIA
  3. OCELLA [Suspect]
  4. ZARAH [Suspect]
  5. MICARDIS [Concomitant]
  6. LASIX [Concomitant]
  7. POTASSIUM [Concomitant]
  8. ASPIRIN [Concomitant]
  9. OMEGA 3 [Concomitant]
  10. HYDROCODONE [Concomitant]
  11. ALBUTEROL [Concomitant]
  12. SPRINTEC [Concomitant]
     Indication: MENORRHAGIA
  13. LORTAB [Concomitant]
  14. IRON [Concomitant]
  15. ALEVE [Concomitant]
  16. B12 [Concomitant]
  17. BABY ASPIRIN [Concomitant]
     Indication: PULMONARY EMBOLISM
  18. PROAIR HFA [Concomitant]
  19. KLOR-CON [Concomitant]

REACTIONS (4)
  - Pulmonary embolism [None]
  - Off label use [None]
  - Injury [None]
  - Pain [None]
